FAERS Safety Report 4333777-4 (Version None)
Quarter: 2004Q2

REPORT INFORMATION
  Report Type: 
  Country: None (occurrence: None)
  Receive Date: 20040402
  Receipt Date: 20040318
  Transmission Date: 20050107
  Serious: Yes (Hospitalization)
  Sender: FDA-Public Use
  Company Number: A0503678A

PATIENT
  Age: 60 Year
  Sex: Male

DRUGS (1)
  1. CONTAC 12 HOUR [Suspect]
     Indication: NASOPHARYNGITIS
     Dosage: ORAL
     Route: 048

REACTIONS (1)
  - CAROTID ARTERY STENOSIS [None]
